FAERS Safety Report 18585723 (Version 1)
Quarter: 2020Q4

REPORT INFORMATION
  Report Type: Spontaneous
  Country: US (occurrence: US)
  Receive Date: 20201207
  Receipt Date: 20201207
  Transmission Date: 20210114
  Serious: Yes (Other)
  Sender: FDA-Public Use
  Company Number: US-CELGENEUS-USA-20201200532

PATIENT
  Sex: Female
  Weight: 60.84 kg

DRUGS (3)
  1. THALOMID [Suspect]
     Active Substance: THALIDOMIDE
     Indication: PLASMA CELL MYELOMA
     Dosage: 50 MILLIGRAM
     Route: 048
     Dates: start: 200812
  2. THALOMID [Suspect]
     Active Substance: THALIDOMIDE
     Dosage: 50 MILLIGRAM
     Route: 048
     Dates: start: 200912
  3. THALOMID [Suspect]
     Active Substance: THALIDOMIDE
     Dosage: 150-100 MILLIGRAM
     Route: 048
     Dates: start: 200902

REACTIONS (1)
  - Neuropathy peripheral [Unknown]
